FAERS Safety Report 24721505 (Version 1)
Quarter: 2024Q4

REPORT INFORMATION
  Report Type: Spontaneous
  Country: CH (occurrence: CH)
  Receive Date: 20241211
  Receipt Date: 20241211
  Transmission Date: 20250115
  Serious: Yes (Hospitalization, Other)
  Sender: DAIICHI
  Company Number: None

PATIENT

DRUGS (16)
  1. ENHERTU [Suspect]
     Active Substance: FAM-TRASTUZUMAB DERUXTECAN-NXKI
     Indication: Breast cancer metastatic
     Dosage: UNK
     Route: 065
     Dates: start: 20240321, end: 20240911
  2. BALDRIAN HOPFEN [Concomitant]
     Indication: Product used for unknown indication
     Dosage: 1 DOSAGE FORM, QD
     Route: 048
  3. BROMAZEPAM [Concomitant]
     Active Substance: BROMAZEPAM
     Indication: Product used for unknown indication
     Dosage: 1.5 MG, QD,0-0-0-1
     Route: 048
  4. CALCIUM CARBONATE\CHOLECALCIFEROL [Concomitant]
     Active Substance: CALCIUM CARBONATE\CHOLECALCIFEROL
     Indication: Product used for unknown indication
     Dosage: 1 DOSAGE FORM, QD,500 MG/800 E 1-0-0-0
     Route: 048
  5. VIFEROL D3 [Concomitant]
     Indication: Product used for unknown indication
     Dosage: UNK, 1 MONTH,25000 UI/ML 1X/MONTH
     Route: 048
  6. ESCITALOPRAM OXALATE [Concomitant]
     Active Substance: ESCITALOPRAM OXALATE
     Indication: Product used for unknown indication
     Dosage: 20 MG, QD, 1-0-0-0
     Route: 048
  7. TORSEMIDE [Concomitant]
     Active Substance: TORSEMIDE
     Indication: Product used for unknown indication
     Dosage: 10 MG, QD, 1-0-0-0
     Route: 048
  8. KCL [Concomitant]
     Active Substance: POTASSIUM CHLORIDE
     Indication: Product used for unknown indication
     Dosage: 10 MMOL, QID, 8 HOURS, 1-1-1-0
     Route: 048
  9. MAGNESIUM SANDOZ [MAGNESIUM ASPARTATE DIHYDRATE;MAGNESIUM CITRATE] [Concomitant]
     Indication: Product used for unknown indication
     Dosage: 243 MG, QD, 0-1-0-0
     Route: 048
  10. PHOSCAP [Concomitant]
     Indication: Product used for unknown indication
     Dosage: 3 MMOL, QD, 3 MMOL 1X DAILY
     Route: 048
  11. TRANSIPEG [MACROGOL 3350;POTASSIUM CHLORIDE;SODIUM BICARBONATE;SODIUM [Concomitant]
     Indication: Product used for unknown indication
     Dosage: 1 DOSAGE FORM, BID, 1-0-1-0
     Route: 048
  12. MORPHINE HYDROCHLORIDE [Concomitant]
     Active Substance: MORPHINE HYDROCHLORIDE
     Indication: Product used for unknown indication
     Dosage: 2 DOSAGE FORM,20 MG/ML, 6 HOURS,4 TIMES DAILY
     Route: 048
  13. MORPHINE HYDROCHLORIDE [Concomitant]
     Active Substance: MORPHINE HYDROCHLORIDE
     Dosage: 6 DOSAGE FORM, AS NEEDED,20 MG/ML 6 DOSES EVERY 6 HOURS
     Route: 048
  14. FENTANYL HELVEPHARM TTS [Concomitant]
     Indication: Product used for unknown indication
     Dosage: 1 DOSAGE FORM, 12 MCG/H, 12 MCG/H TRANSDERMAL 1 PIECE EVERY 72 HOURS
     Route: 062
  15. MOTILIUM [Concomitant]
     Active Substance: DOMPERIDONE
     Indication: Product used for unknown indication
     Dosage: 10 MG, AS NEEDED,10 MG IF REQUIRED UP TO 3 TIMES DAILY
     Route: 048
  16. METOCLOPRAMIDE HYDROCHLORIDE [Concomitant]
     Active Substance: METOCLOPRAMIDE HYDROCHLORIDE
     Indication: Product used for unknown indication
     Dosage: 10 MG, AS NEEDED,10 MG IF REQUIRED UP TO 3 TIMES A DAY
     Route: 048

REACTIONS (1)
  - Drug-induced liver injury [Not Recovered/Not Resolved]

NARRATIVE: CASE EVENT DATE: 20240601
